FAERS Safety Report 4466367-3 (Version None)
Quarter: 2004Q3

REPORT INFORMATION
  Report Type: 
  Country: None (occurrence: None)
  Receive Date: 20040930
  Receipt Date: 20040917
  Transmission Date: 20050211
  Serious: No
  Sender: FDA-Public Use
  Company Number: 209142

PATIENT
  Age: 12 Year
  Sex: Female
  Weight: 37.1 kg

DRUGS (1)
  1. NUTROPIN [Suspect]
     Indication: TURNER'S SYNDROME
     Dosage: 2.004 MG, QD
     Dates: start: 20011113, end: 20040716

REACTIONS (1)
  - GIANT CELL TUMOUR OF TENDON SHEATH [None]
